FAERS Safety Report 8472283-2 (Version None)
Quarter: 2012Q2

REPORT INFORMATION
  Report Type: 
  Country: None (occurrence: None)
  Receive Date: 20120627
  Receipt Date: 20120619
  Transmission Date: 20120825
  Serious: Yes (Hospitalization)
  Sender: FDA-Public Use
  Company Number: FR-VERTEX PHARMACEUTICALS INC.-AE-2011-000843

PATIENT
  Sex: Female
  Weight: 63 kg

DRUGS (14)
  1. OMEPRAZOLE [Concomitant]
     Indication: DYSPEPSIA
  2. PROMACTA [Concomitant]
     Indication: THROMBOCYTOPENIA
     Route: 048
     Dates: start: 20110308, end: 20110628
  3. ALDACTONE [Concomitant]
     Indication: HYPERTENSION
     Dates: start: 19940101
  4. NEORECORMON [Concomitant]
     Indication: ANAEMIA
     Dates: start: 20110526, end: 20110628
  5. DEXERYL [Concomitant]
     Indication: PRURITUS
     Dates: start: 20110502, end: 20110628
  6. PULMICORT [Concomitant]
     Indication: COUGH
     Dates: start: 20110502, end: 20110602
  7. VX-950 [Suspect]
     Indication: HEPATITIS C
     Route: 048
     Dates: start: 20110502, end: 20110628
  8. VOGALENE [Concomitant]
     Indication: VOMITING
     Dates: start: 20110513
  9. OMEPRAZOLE [Concomitant]
     Indication: OESOPHAGITIS
     Dates: start: 20110216, end: 20110628
  10. XYZAL [Concomitant]
     Indication: PRURITUS
     Dates: start: 20110502, end: 20110628
  11. ACETAMINOPHEN [Concomitant]
     Indication: INFLUENZA
     Dates: start: 20110328, end: 20110628
  12. PEGASYS [Concomitant]
     Indication: HEPATITIS C
     Route: 058
     Dates: start: 20110328, end: 20110628
  13. COPEGUS [Concomitant]
     Indication: HEPATITIS C
     Route: 048
     Dates: start: 20110328, end: 20110628
  14. PROPRANOLOL [Concomitant]
     Indication: HYPERTENSION
     Dates: start: 19940101

REACTIONS (5)
  - ASCITES [None]
  - OEDEMA [None]
  - ASTHENIA [None]
  - ANAEMIA [None]
  - STAPHYLOCOCCAL SEPSIS [None]
